FAERS Safety Report 19161436 (Version 1)
Quarter: 2021Q2

REPORT INFORMATION
  Report Type: Spontaneous
  Country: SA (occurrence: SA)
  Receive Date: 20210421
  Receipt Date: 20210421
  Transmission Date: 20210717
  Serious: Yes (Other)
  Sender: FDA-Public Use
  Company Number: SA-SUN PHARMACEUTICAL INDUSTRIES LTD-2021RR-292385

PATIENT
  Age: 11 Year
  Sex: Male

DRUGS (21)
  1. BORTEZOMIB. [Suspect]
     Active Substance: BORTEZOMIB
     Indication: HODGKIN^S DISEASE
     Dosage: UNK
     Route: 065
  2. VINCRISTINE [Suspect]
     Active Substance: VINCRISTINE
     Indication: HODGKIN^S DISEASE
     Dosage: 1.5 MILLIGRAM/SQ. METER, DAYS 1 AND 8
     Route: 042
  3. BRENTUXIMAB VEDOTIN [Suspect]
     Active Substance: BRENTUXIMAB VEDOTIN
     Indication: HODGKIN^S DISEASE
     Dosage: 1.8 MILLIGRAM/SQ. METER, 1 DAY
     Route: 065
  4. BENDAMUSTIN [Suspect]
     Active Substance: BENDAMUSTINE
     Indication: HODGKIN^S DISEASE
     Dosage: 90 MILLIGRAM/SQ. METER, FOR 2 DAYS
     Route: 065
  5. FLUDARABINE [Suspect]
     Active Substance: FLUDARABINE PHOSPHATE
     Indication: HODGKIN^S DISEASE
     Dosage: 30 MILLIGRAM/SQ. METER, FOR 3 DAYS
     Route: 065
  6. PREDNISONE. [Suspect]
     Active Substance: PREDNISONE
     Indication: HODGKIN^S DISEASE
     Dosage: 1 MILLIGRAM/KG FOR 10 DAYS
     Route: 048
  7. CYTARABINE. [Suspect]
     Active Substance: CYTARABINE
     Indication: HODGKIN^S DISEASE
     Dosage: 200 MILLIGRAM/SQ. METER, FOR 4 DAYS
     Route: 065
  8. CARMUSTINE. [Suspect]
     Active Substance: CARMUSTINE
     Indication: HODGKIN^S DISEASE
     Dosage: 300 MILLIGRAM/SQ. METER, DAY 6
     Route: 065
  9. VINBLASTINE [Suspect]
     Active Substance: VINBLASTINE
     Indication: HODGKIN^S DISEASE
     Dosage: 6 MILLIGRAM/SQ. METER, DAYS 1 AND 15
     Route: 042
  10. CYCLOPHOSPHAMIDE. [Suspect]
     Active Substance: CYCLOPHOSPHAMIDE
     Indication: HODGKIN^S DISEASE
     Dosage: 200 MILLIGRAM/SQ. METER, DAYS 1 AND 15
     Route: 042
  11. MYCOPHENOLATE MOFETIL. [Suspect]
     Active Substance: MYCOPHENOLATE MOFETIL
     Indication: PROPHYLAXIS
     Dosage: UNK
     Route: 065
  12. PROCARBAZINE [Suspect]
     Active Substance: PROCARBAZINE
     Indication: HODGKIN^S DISEASE
     Dosage: 100 MILLIGRAM/SQ. METER, DAILY
     Route: 048
  13. CYCLOSPORINE. [Suspect]
     Active Substance: CYCLOSPORINE
     Indication: GRAFT VERSUS HOST DISEASE
     Dosage: UNK
     Route: 065
  14. BLEOMYCIN [Suspect]
     Active Substance: BLEOMYCIN SULFATE
     Indication: HODGKIN^S DISEASE
     Dosage: 10 MILLIGRAM/SQ. METER, DAYS 1 AND 15
     Route: 042
  15. ETOPSIDE [Suspect]
     Active Substance: ETOPOSIDE
     Indication: HODGKIN^S DISEASE
     Dosage: 100 MILLIGRAM/SQ. METER, FOR 4 DAYS
     Route: 065
  16. THIOTEPA. [Suspect]
     Active Substance: THIOTEPA
     Indication: HODGKIN^S DISEASE
     Dosage: 7 MILLIGRAM/SQ. METER, FOR 1 DAY
     Route: 065
  17. DOXORUBICIN LIPOSOME [Suspect]
     Active Substance: DOXORUBICIN
     Indication: HODGKIN^S DISEASE
     Dosage: 25 MILLIGRAM/SQ. METER, DAYS 1 AND 15
     Route: 042
  18. MELPHALAN. [Suspect]
     Active Substance: MELPHALAN
     Indication: HODGKIN^S DISEASE
     Dosage: 160 MILLIGRAM/SQ. METER FOR 1 DAY
     Route: 065
  19. DACARBAZINE. [Suspect]
     Active Substance: DACARBAZINE
     Indication: HODGKIN^S DISEASE
     Dosage: 400 MILLIGRAM/SQ. METER, DAYS 1 AND 15
     Route: 042
  20. CYCLOPHOSPHAMIDE. [Suspect]
     Active Substance: CYCLOPHOSPHAMIDE
     Dosage: 50 MILLIGRAM/SQ. METER, FOR 2 DAYS
     Route: 042
  21. BRENTUXIMAB VEDOTIN [Suspect]
     Active Substance: BRENTUXIMAB VEDOTIN
     Dosage: 1.8 MILLIGRAM/SQ. METER, 1 DAY
     Route: 065

REACTIONS (4)
  - Therapeutic product effect incomplete [Unknown]
  - Graft versus host disease [Unknown]
  - Treatment failure [Unknown]
  - Disease progression [Unknown]
